FAERS Safety Report 10884064 (Version 9)
Quarter: 2020Q1

REPORT INFORMATION
  Report Type: Spontaneous
  Country: US (occurrence: US)
  Receive Date: 20150304
  Receipt Date: 20200108
  Transmission Date: 20200409
  Serious: Yes (Hospitalization, Other)
  Sender: FDA-Public Use
  Company Number: US-PFIZER INC-2015073698

PATIENT
  Age: 58 Year
  Sex: Female
  Weight: 78 kg

DRUGS (12)
  1. PREDNISONE. [Concomitant]
     Active Substance: PREDNISONE
     Dosage: 2.5 MG, 2X/DAY
  2. LEXAPRO [Concomitant]
     Active Substance: ESCITALOPRAM OXALATE
     Dosage: UNK
  3. VITAMIN E [Concomitant]
     Active Substance: .ALPHA.-TOCOPHEROL
     Dosage: UNK
  4. CITALOPRAM [Concomitant]
     Active Substance: CITALOPRAM HYDROBROMIDE
     Dosage: 20 MG, DAILY
  5. LYRICA [Suspect]
     Active Substance: PREGABALIN
     Indication: PAIN IN EXTREMITY
     Dosage: 300 MG, 2X/DAY (IN MORNING AND IN THE EVENING CAPSULES)
     Route: 048
     Dates: start: 201203, end: 201502
  6. LYRICA [Suspect]
     Active Substance: PREGABALIN
     Indication: FIBROMYALGIA
  7. LYRICA [Suspect]
     Active Substance: PREGABALIN
     Indication: PANNICULITIS
  8. HYDROCORTISONE. [Concomitant]
     Active Substance: HYDROCORTISONE
     Indication: SKIN EXFOLIATION
     Dosage: UNK (AT NIGHT TIME)
  9. LYRICA [Suspect]
     Active Substance: PREGABALIN
     Indication: INFLAMMATION
     Dosage: 150 MG, 2X/DAY
     Route: 048
     Dates: start: 2015
  10. XANAX [Concomitant]
     Active Substance: ALPRAZOLAM
     Dosage: 0.5 MG, 2X/DAY
  11. LYRICA [Suspect]
     Active Substance: PREGABALIN
     Indication: NEUROPATHY PERIPHERAL
  12. LYRICA [Suspect]
     Active Substance: PREGABALIN
     Indication: GAIT INABILITY

REACTIONS (16)
  - Insomnia [Unknown]
  - Influenza like illness [Unknown]
  - Peripheral swelling [Unknown]
  - Pain [Unknown]
  - Wound [Unknown]
  - Disease progression [Not Recovered/Not Resolved]
  - Gait inability [Not Recovered/Not Resolved]
  - Staphylococcal infection [Unknown]
  - Skin ulcer [Unknown]
  - Disease recurrence [Unknown]
  - Condition aggravated [Unknown]
  - Skin fissures [Unknown]
  - Bone pain [Unknown]
  - Chills [Unknown]
  - Panniculitis [Not Recovered/Not Resolved]
  - Inflammation [Unknown]

NARRATIVE: CASE EVENT DATE: 201502
